FAERS Safety Report 9665722 (Version 6)
Quarter: 2014Q2

REPORT INFORMATION
  Report Type: Spontaneous
  Country: GB (occurrence: GB)
  Receive Date: 20131104
  Receipt Date: 20140414
  Transmission Date: 20141212
  Serious: Yes (Hospitalization, Other)
  Sender: FDA-Public Use
  Company Number: PHFR2013GB006181

PATIENT
  Age: 65 Year
  Sex: Male

DRUGS (5)
  1. CLOZARIL [Suspect]
     Indication: SCHIZOPHRENIA
     Dosage: UNK
     Route: 048
     Dates: start: 20101203
  2. CLOZARIL [Suspect]
     Indication: TARDIVE DYSKINESIA
     Dosage: 150 MG, DAILY
     Route: 048
  3. DEPAKOT [Concomitant]
     Indication: BIPOLAR DISORDER
     Dosage: 1250 MG, DAILY
     Route: 048
  4. THYROXINE [Concomitant]
     Indication: HYPOTHYROIDISM
     Dosage: 150 MG, DAILY
     Route: 048
  5. CITALOPRAM [Concomitant]
     Indication: BIPOLAR DISORDER
     Dosage: 30 MG, DAILY
     Route: 048

REACTIONS (5)
  - Pancytopenia [Recovered/Resolved]
  - Platelet count decreased [Not Recovered/Not Resolved]
  - White blood cell count decreased [Unknown]
  - Neutrophil count decreased [Unknown]
  - Infection [Recovered/Resolved]
